FAERS Safety Report 5523917-3 (Version None)
Quarter: 2007Q4

REPORT INFORMATION
  Report Type: 
  Country: None (occurrence: None)
  Receive Date: 20071121
  Receipt Date: 20071119
  Transmission Date: 20080405
  Serious: Yes (Hospitalization)
  Sender: FDA-Public Use
  Company Number: US-SHR-US-2007-019099

PATIENT
  Age: 58 Year
  Sex: Female
  Weight: 72.562 kg

DRUGS (18)
  1. BETASERON [Suspect]
     Indication: SECONDARY PROGRESSIVE MULTIPLE SCLEROSIS
     Dosage: 8 MIU, EVERY 2D
     Route: 058
     Dates: start: 20001012
  2. NEURONTIN [Concomitant]
     Dosage: 600 MG, UNK
  3. LEXAPRO [Concomitant]
     Dosage: 30 MG, UNK
  4. KLONOPIN [Concomitant]
     Dosage: 1 MG, UNK
  5. FLOMAX [Concomitant]
  6. PREMARIN [Concomitant]
  7. ACTONEL [Concomitant]
  8. CALCIUM [Concomitant]
  9. MULTIVIT [Concomitant]
  10. ALLEGRA [Concomitant]
     Route: 037
  11. MORPHINE [Concomitant]
     Route: 037
  12. BACLOFEN [Concomitant]
     Route: 037
  13. NORCO [Concomitant]
     Dosage: UNK, AS REQ'D
  14. AMBIEN [Concomitant]
     Dosage: UNK, AS REQ'D
  15. XANAX [Concomitant]
     Dosage: UNK, AS REQ'D
  16. PHENERGAN HCL [Concomitant]
     Dosage: UNK, AS REQ'D
  17. SANCTURA [Concomitant]
  18. TRAZODONE HCL [Concomitant]
     Dosage: 150 MG, UNK

REACTIONS (1)
  - MUSCLE SPASMS [None]
